FAERS Safety Report 16025690 (Version 2)
Quarter: 2019Q2

REPORT INFORMATION
  Report Type: Report from Study
  Country: None (occurrence: US)
  Receive Date: 20190302
  Receipt Date: 20190531
  Transmission Date: 20190711
  Serious: Yes (Other)
  Sender: FDA-Public Use
  Company Number: US-ABBVIE-19K-163-2685586-00

PATIENT
  Age: 52 Year
  Sex: Male
  Weight: 118.04 kg

DRUGS (8)
  1. PANTOPRAZOLE [Concomitant]
     Active Substance: PANTOPRAZOLE
     Indication: GASTROOESOPHAGEAL REFLUX DISEASE
  2. GABAPENTIN. [Concomitant]
     Active Substance: GABAPENTIN
     Indication: DIABETIC NEUROPATHY
  3. CYCLOBENZAPRINE. [Concomitant]
     Active Substance: CYCLOBENZAPRINE
     Indication: MUSCLE SPASMS
  4. CLONAZEPAM. [Concomitant]
     Active Substance: CLONAZEPAM
     Indication: ANXIETY
  5. PROPANOLOL [Concomitant]
     Active Substance: PROPRANOLOL HYDROCHLORIDE
     Indication: MIGRAINE
  6. METHOCARBAMOL. [Concomitant]
     Active Substance: METHOCARBAMOL
     Indication: MUSCLE SPASMS
  7. RANITIDINE. [Concomitant]
     Active Substance: RANITIDINE
     Indication: GASTROOESOPHAGEAL REFLUX DISEASE
  8. HUMIRA [Suspect]
     Active Substance: ADALIMUMAB
     Indication: HIDRADENITIS
     Route: 058
     Dates: start: 201810

REACTIONS (10)
  - Procedural pain [Recovered/Resolved]
  - Feeling abnormal [Recovered/Resolved]
  - Gallbladder disorder [Recovered/Resolved]
  - Chest pain [Recovered/Resolved]
  - Procedural pain [Recovering/Resolving]
  - Incisional hernia [Recovered/Resolved]
  - Dyspnoea [Recovered/Resolved]
  - Abdominal hernia [Recovering/Resolving]
  - Hyperhidrosis [Recovered/Resolved]
  - Calcinosis [Recovered/Resolved]

NARRATIVE: CASE EVENT DATE: 201810
